FAERS Safety Report 8201920-2 (Version None)
Quarter: 2012Q1

REPORT INFORMATION
  Report Type: 
  Country: None (occurrence: None)
  Receive Date: 20120312
  Receipt Date: 20120307
  Transmission Date: 20120608
  Serious: No
  Sender: FDA-Public Use
  Company Number: US-TEVA-326978USA

PATIENT
  Sex: Female
  Weight: 71.732 kg

DRUGS (4)
  1. COLESEVELAM HYDROCHLORIDE [Concomitant]
     Dosage: 625 MILLIGRAM;
     Route: 048
     Dates: start: 20120221, end: 20120306
  2. METOPROLOL SUCCINATE [Concomitant]
     Indication: HYPERTENSION
     Dosage: 100 MILLIGRAM;
     Route: 048
  3. MAGNESIUM [Concomitant]
     Indication: VITAMIN SUPPLEMENTATION
     Route: 048
  4. PROAIR HFA [Suspect]
     Indication: DYSPNOEA
     Dosage: 180 MICROGRAM;
     Route: 055
     Dates: start: 20111031

REACTIONS (2)
  - CHOKING [None]
  - THROAT IRRITATION [None]
